FAERS Safety Report 12851604 (Version 1)
Quarter: 2016Q4

REPORT INFORMATION
  Report Type: Spontaneous
  Country: US (occurrence: US)
  Receive Date: 20161014
  Receipt Date: 20161014
  Transmission Date: 20170207
  Serious: Yes (Other)
  Sender: FDA-Public Use
  Company Number: None

PATIENT
  Age: 47 Year
  Sex: Female

DRUGS (1)
  1. AZITHROMYCIN ANHYDROUS. [Suspect]
     Active Substance: AZITHROMYCIN ANHYDROUS
     Indication: COUGH
     Dosage: 3 TABLET(S) DAY1-2, DAY1-2 ORAL
     Route: 048
     Dates: start: 20161003, end: 20161004

REACTIONS (2)
  - Tinnitus [None]
  - Deafness [None]

NARRATIVE: CASE EVENT DATE: 20161003
